FAERS Safety Report 4972363-X (Version None)
Quarter: 2006Q2

REPORT INFORMATION
  Report Type: 
  Country: None (occurrence: None)
  Receive Date: 20060413
  Receipt Date: 20051025
  Transmission Date: 20061013
  Serious: Yes (Hospitalization)
  Sender: FDA-Public Use
  Company Number: US-MERCK-0510USA09220

PATIENT
  Age: 68 Year
  Sex: Male
  Weight: 114 kg

DRUGS (7)
  1. VIOXX [Suspect]
     Indication: ARTHRITIS
     Route: 048
     Dates: start: 20000601, end: 20040901
  2. VIOXX [Suspect]
     Indication: PAIN
     Route: 048
     Dates: start: 20000601, end: 20040901
  3. VICODIN [Concomitant]
     Route: 065
  4. METFORMIN [Concomitant]
     Route: 065
  5. LASIX [Concomitant]
     Route: 065
  6. NORVASC [Concomitant]
     Route: 065
  7. DOXAZOSIN MESYLATE [Concomitant]
     Route: 065

REACTIONS (9)
  - ABDOMINAL PAIN [None]
  - CARDIOVASCULAR DISORDER [None]
  - CEREBROVASCULAR ACCIDENT [None]
  - CONSTIPATION [None]
  - HAEMATURIA [None]
  - PULMONARY EMBOLISM [None]
  - ROTATOR CUFF SYNDROME [None]
  - SHOULDER PAIN [None]
  - URINARY TRACT INFECTION [None]
